FAERS Safety Report 16004828 (Version 3)
Quarter: 2019Q2

REPORT INFORMATION
  Report Type: Spontaneous
  Country: US (occurrence: US)
  Receive Date: 20190226
  Receipt Date: 20190417
  Transmission Date: 20190711
  Serious: No
  Sender: FDA-Public Use
  Company Number: PHEH2019US007671

PATIENT
  Sex: Female

DRUGS (2)
  1. LENVATINIB [Suspect]
     Active Substance: LENVATINIB
     Indication: RENAL CANCER
     Dosage: 18 MG, QD
     Route: 048
  2. AFINITOR [Suspect]
     Active Substance: EVEROLIMUS
     Indication: RENAL CANCER
     Dosage: 5 MG, QD
     Route: 048

REACTIONS (8)
  - Feeling abnormal [Unknown]
  - Nausea [Unknown]
  - Sinusitis [Unknown]
  - Malaise [Unknown]
  - Dysphagia [Unknown]
  - Musculoskeletal chest pain [Unknown]
  - Hypertension [Recovered/Resolved]
  - Fatigue [Unknown]
